FAERS Safety Report 15664276 (Version 2)
Quarter: 2018Q4

REPORT INFORMATION
  Report Type: Report from Study
  Country: CN (occurrence: CN)
  Receive Date: 20181128
  Receipt Date: 20181204
  Transmission Date: 20190205
  Serious: Yes (Hospitalization)
  Sender: FDA-Public Use
  Company Number: CN-ROCHE-2219796

PATIENT
  Age: 58 Year
  Sex: Male
  Weight: 65 kg

DRUGS (5)
  1. ATEZOLIZUMAB. [Suspect]
     Active Substance: ATEZOLIZUMAB
     Indication: HEPATOCELLULAR CARCINOMA
     Dosage: ON 14/NOV/2018, MOST RECENT DOSE OF ATEZOLIZUMAB PRIOR TO SAE ONSET
     Route: 042
     Dates: start: 20181114
  2. ENTECAVIR. [Concomitant]
     Active Substance: ENTECAVIR
     Route: 065
     Dates: start: 201804
  3. DYCLONINE HYDROCHLORIDE [Concomitant]
     Active Substance: DYCLONINE HYDROCHLORIDE
     Route: 065
     Dates: start: 20181108, end: 20181108
  4. NIFEDIPINE SR [Concomitant]
     Active Substance: NIFEDIPINE
     Indication: HYPERTENSION
     Route: 065
     Dates: start: 20181112
  5. BEVACIZUMAB. [Suspect]
     Active Substance: BEVACIZUMAB
     Indication: HEPATOCELLULAR CARCINOMA
     Dosage: ON 14/NOV/2018, LAST BEVACIZUMAB ADMINISTERED PRIOR TO SAE ONSET 975 MG
     Route: 042
     Dates: start: 20181114

REACTIONS (1)
  - Pyrexia [Recovered/Resolved]

NARRATIVE: CASE EVENT DATE: 20181116
